FAERS Safety Report 24748761 (Version 5)
Quarter: 2025Q3

REPORT INFORMATION
  Report Type: Spontaneous
  Country: CA (occurrence: CA)
  Receive Date: 20241218
  Receipt Date: 20250819
  Transmission Date: 20251021
  Serious: Yes (Hospitalization, Other)
  Sender: PFIZER
  Company Number: CA-PFIZER INC-202400326609

PATIENT
  Age: 43 Year
  Sex: Female

DRUGS (10)
  1. RUXIENCE [Suspect]
     Active Substance: RITUXIMAB-PVVR
     Indication: Connective tissue disorder
     Route: 042
     Dates: start: 20240506, end: 20240506
  2. RUXIENCE [Suspect]
     Active Substance: RITUXIMAB-PVVR
     Route: 042
     Dates: start: 20240521
  3. RUXIENCE [Suspect]
     Active Substance: RITUXIMAB-PVVR
     Route: 042
     Dates: start: 20250122
  4. RUXIENCE [Suspect]
     Active Substance: RITUXIMAB-PVVR
     Route: 042
     Dates: start: 20250205
  5. RUXIENCE [Suspect]
     Active Substance: RITUXIMAB-PVVR
     Route: 042
     Dates: start: 20250813
  6. APIXABAN [Concomitant]
     Active Substance: APIXABAN
     Dosage: 10 MG,DAILY
  7. DEXILANT [Concomitant]
     Active Substance: DEXLANSOPRAZOLE
     Indication: Gastrooesophageal reflux disease
  8. HUMAN IMMUNOGLOBULIN G [Concomitant]
     Active Substance: HUMAN IMMUNOGLOBULIN G
     Dosage: 1 DF, MONTHLY
     Route: 042
  9. MYCOPHENOLIC ACID [Concomitant]
     Active Substance: MYCOPHENOLIC ACID
     Dosage: 3000 MG,DAILY
  10. PREDNISONE [Concomitant]
     Active Substance: PREDNISONE
     Dosage: 60 MG,DAILY (SHORT COURSE OF HIGH-DOSE)

REACTIONS (5)
  - Infection [Unknown]
  - Condition aggravated [Unknown]
  - Mycoplasma infection [Unknown]
  - Interstitial lung disease [Unknown]
  - Antisynthetase syndrome [Unknown]

NARRATIVE: CASE EVENT DATE: 20240101
